FAERS Safety Report 6515976-6 (Version None)
Quarter: 2009Q4

REPORT INFORMATION
  Report Type: 
  Country: None (occurrence: None)
  Receive Date: 20091223
  Receipt Date: 20091221
  Transmission Date: 20100525
  Serious: Yes (Hospitalization)
  Sender: FDA-Public Use
  Company Number: US-ELI_LILLY_AND_COMPANY-US200911005245

PATIENT
  Sex: Male

DRUGS (18)
  1. GEMCITABINE HCL [Suspect]
     Indication: PANCREATIC CARCINOMA
     Dosage: 1000 MG/M2, UNK
     Route: 042
     Dates: start: 20090821, end: 20091030
  2. PACLITAXEL [Suspect]
     Indication: PANCREATIC CARCINOMA
     Dosage: 125 MG/M2, UNK
     Route: 042
     Dates: start: 20090821, end: 20091030
  3. VANCOMYCIN [Concomitant]
     Indication: PNEUMONIA
     Dates: start: 20091101
  4. ALBUTEROL [Concomitant]
     Dosage: 2 D/F, AS NEEDED
     Dates: start: 20090811
  5. ASPIRIN [Concomitant]
     Dosage: 1 D/F, DAILY (1/D)
     Route: 048
     Dates: start: 20060407
  6. FLOMAX [Concomitant]
     Dosage: 0.4 MG, UNK
     Route: 048
     Dates: start: 20090811
  7. LOVENOX [Concomitant]
     Dosage: 0.9 ML, 2/D
     Route: 058
     Dates: start: 20090821
  8. OMEPRAZOLE [Concomitant]
     Dosage: 40 MG, DAILY (1/D)
     Route: 048
     Dates: start: 20090811
  9. SERTRALINE HYDROCHLORIDE [Concomitant]
     Dosage: 3 D/F, DAILY (1/D)
     Route: 048
     Dates: start: 20090811
  10. VICODIN [Concomitant]
     Dosage: 2 D/F, AS NEEDED
     Route: 048
     Dates: start: 20090811
  11. ZETIA [Concomitant]
     Dosage: 10 MG, UNK
     Route: 048
     Dates: start: 20090811
  12. ZOLPIDEM [Concomitant]
     Dosage: 10 MG, UNK
     Route: 048
     Dates: start: 20090811
  13. DIPHENHYDRAMINE HCL [Concomitant]
  14. COLACE [Concomitant]
     Dosage: 100 MG, UNK
  15. MACROGOL [Concomitant]
  16. ACETAMINOPHEN [Concomitant]
     Indication: PYREXIA
  17. ARIXTRA [Concomitant]
     Dosage: 7.5 MG, UNK
     Route: 058
  18. OXYCODONE [Concomitant]
     Dosage: 10 MG, AS NEEDED

REACTIONS (7)
  - ABDOMINAL PAIN [None]
  - BLOOD GLUCOSE INCREASED [None]
  - CELLULITIS [None]
  - OEDEMA PERIPHERAL [None]
  - PNEUMONIA [None]
  - POSTNASAL DRIP [None]
  - PYREXIA [None]
